FAERS Safety Report 5152046-6 (Version None)
Quarter: 2006Q4

REPORT INFORMATION
  Report Type: 
  Country: None (occurrence: None)
  Receive Date: 20061116
  Receipt Date: 20061106
  Transmission Date: 20070319
  Serious: Yes (Hospitalization)
  Sender: FDA-Public Use
  Company Number: PHMT2006CA02095

PATIENT
  Age: 49 Year
  Sex: Female

DRUGS (1)
  1. CLOZARIL [Suspect]
     Route: 048
     Dates: start: 20061004

REACTIONS (3)
  - BODY TEMPERATURE INCREASED [None]
  - HYPERTHERMIA [None]
  - RED BLOOD CELL COUNT DECREASED [None]
